FAERS Safety Report 23250554 (Version 1)
Quarter: 2023Q4

REPORT INFORMATION
  Report Type: Other
  Country: None (occurrence: CN)
  Receive Date: 20231201
  Receipt Date: 20231201
  Transmission Date: 20240110
  Serious: Yes (Life-Threatening)
  Sender: FDA-Public Use
  Company Number: CN-B.Braun Medical Inc.-2148903

PATIENT
  Age: 30 Year
  Sex: Female

DRUGS (2)
  1. HEPARIN SODIUM IN DEXTROSE [Suspect]
     Active Substance: HEPARIN SODIUM
     Indication: Anticoagulant therapy
  2. High-dose vasoactive drugs [Concomitant]

REACTIONS (6)
  - Maternal exposure during pregnancy [None]
  - Foetal death [None]
  - Premature delivery [None]
  - Supraventricular tachycardia [None]
  - Ventricular tachycardia [None]
  - Acute myocardial infarction [None]
